FAERS Safety Report 9359720 (Version 8)
Quarter: 2014Q2

REPORT INFORMATION
  Report Type: Spontaneous
  Country: BR (occurrence: BR)
  Receive Date: 20130621
  Receipt Date: 20140403
  Transmission Date: 20141212
  Serious: Yes (Other)
  Sender: FDA-Public Use
  Company Number: BR-AMGEN-BRASP2013043045

PATIENT
  Age: 9 Year
  Sex: Female
  Weight: 27 kg

DRUGS (12)
  1. ENBREL [Suspect]
     Indication: JUVENILE IDIOPATHIC ARTHRITIS
     Dosage: 25 MG, ONCE WEEKLY
     Route: 058
     Dates: start: 200904, end: 2009
  2. ENBREL [Suspect]
     Dosage: 25 MG, 2 TIMES/WK
     Route: 058
     Dates: start: 2009, end: 201402
  3. PIROXICAM [Suspect]
     Indication: JUVENILE IDIOPATHIC ARTHRITIS
     Dosage: ONE TABLET (20 MG), AS NEEDED
     Route: 065
  4. PIROXICAM [Suspect]
     Indication: PAIN
     Dosage: UNK
     Route: 065
  5. PREDNISONE [Suspect]
     Indication: JUVENILE IDIOPATHIC ARTHRITIS
     Dosage: ONE TABLET (20 MG), AS NEEDED
     Route: 065
  6. PREDNISONE [Suspect]
     Indication: PAIN
     Dosage: UNK
     Route: 065
  7. CHLOROQUINE [Suspect]
     Indication: MALARIA
     Dosage: UNK
     Route: 065
  8. PRIMAQUINE [Suspect]
     Indication: MALARIA
     Dosage: UNK
     Route: 065
  9. OMEPRAZOLE [Concomitant]
     Indication: GASTRIC DISORDER
     Dosage: 20 MG, 1X/DAY
  10. OMEPRAZOLE [Concomitant]
     Indication: ABDOMINAL PAIN UPPER
  11. ALUMINIUM HYDROXIDE [Concomitant]
     Indication: GASTRIC DISORDER
     Dosage: 20 MG, 1X/DAY
  12. BUSCOPAN [Concomitant]
     Indication: PAIN
     Dosage: UNK

REACTIONS (15)
  - Abdominal pain upper [Unknown]
  - Musculoskeletal stiffness [Unknown]
  - Finger deformity [Unknown]
  - Developmental delay [Unknown]
  - Headache [Recovering/Resolving]
  - Drug effect incomplete [Unknown]
  - Pain [Unknown]
  - Dandruff [Unknown]
  - Alopecia [Unknown]
  - Calcinosis [Unknown]
  - Neoplasm skin [Unknown]
  - Arthritis infective [Unknown]
  - Malaria [Unknown]
  - Drug ineffective [Unknown]
  - Anaemia [Unknown]
